FAERS Safety Report 20585013 (Version 6)
Quarter: 2022Q3

REPORT INFORMATION
  Report Type: Report from Study
  Country: US (occurrence: US)
  Receive Date: 20220311
  Receipt Date: 20220912
  Transmission Date: 20221027
  Serious: Yes (Other)
  Sender: FDA-Public Use
  Company Number: US-PFIZER INC-202200348927

PATIENT
  Age: 90 Year
  Sex: Female

DRUGS (2)
  1. IBRANCE [Suspect]
     Active Substance: PALBOCICLIB
     Indication: Breast cancer female
     Dosage: 75 MG, CYCLIC (DAILY FOR 21 DAYS ON, AND OFF 7 DAYS)
     Route: 048
     Dates: start: 20220214
  2. LETROZOLE [Concomitant]
     Active Substance: LETROZOLE
     Dosage: UNK, DAILY

REACTIONS (13)
  - Neuropathy peripheral [Not Recovered/Not Resolved]
  - Fatigue [Not Recovered/Not Resolved]
  - Red blood cell count decreased [Not Recovered/Not Resolved]
  - Haemoglobin decreased [Unknown]
  - White blood cell count decreased [Not Recovered/Not Resolved]
  - Hypotension [Unknown]
  - Dizziness [Unknown]
  - Arthritis [Not Recovered/Not Resolved]
  - Arthritis [Not Recovered/Not Resolved]
  - Alopecia [Not Recovered/Not Resolved]
  - Fall [Unknown]
  - Head injury [Unknown]
  - Eye contusion [Not Recovered/Not Resolved]

NARRATIVE: CASE EVENT DATE: 20220101
